FAERS Safety Report 8965377 (Version 7)
Quarter: 2013Q1

REPORT INFORMATION
  Report Type: Spontaneous
  Country: JP (occurrence: JP)
  Receive Date: 20121213
  Receipt Date: 20130315
  Transmission Date: 20140127
  Serious: Yes (Death)
  Sender: FDA-Public Use
  Company Number: JP-BRISTOL-MYERS SQUIBB COMPANY-17197922

PATIENT
  Age: 75 Year
  Sex: Female
  Weight: 46.3 kg

DRUGS (9)
  1. ORENCIA FOR INJ [Suspect]
     Indication: RHEUMATOID ARTHRITIS
     Route: 042
     Dates: start: 20110611, end: 20121129
  2. METHOTREXATE [Suspect]
     Indication: RHEUMATOID ARTHRITIS
     Route: 048
     Dates: end: 20121203
  3. PROGRAF [Suspect]
     Indication: RHEUMATOID ARTHRITIS
     Route: 048
     Dates: end: 20121203
  4. PREDNISOLONE [Suspect]
     Indication: RHEUMATOID ARTHRITIS
     Route: 048
     Dates: end: 20121203
  5. FOLIAMIN [Concomitant]
     Indication: RHEUMATOID ARTHRITIS
     Route: 048
     Dates: end: 20121203
  6. TAKEPRON [Concomitant]
     Indication: GASTRITIS PROPHYLAXIS
     Dosage: TABS
     Route: 048
     Dates: end: 20121203
  7. CRESTOR [Concomitant]
     Indication: DYSLIPIDAEMIA
     Dosage: TABS
     Route: 048
     Dates: end: 20121203
  8. NORVASC [Concomitant]
     Indication: HYPERTENSION
     Dosage: TABS
     Route: 048
     Dates: end: 20121203
  9. BLOPRESS [Concomitant]
     Indication: HYPERTENSION
     Dosage: TABS
     Route: 048
     Dates: end: 20121203

REACTIONS (4)
  - Pneumocystis jirovecii pneumonia [Fatal]
  - Hepatitis B [Fatal]
  - Cytomegalovirus infection [Fatal]
  - Candida pneumonia [Fatal]
